FAERS Safety Report 24528592 (Version 3)
Quarter: 2024Q4

REPORT INFORMATION
  Report Type: Spontaneous
  Country: CA (occurrence: CA)
  Receive Date: 20241021
  Receipt Date: 20241114
  Transmission Date: 20250114
  Serious: Yes (Hospitalization, Other)
  Sender: JOHNSON AND JOHNSON
  Company Number: CA-JNJFOC-20241033871

PATIENT
  Age: 44 Year
  Sex: Female

DRUGS (6)
  1. INVEGA SUSTENNA [Suspect]
     Active Substance: PALIPERIDONE PALMITATE
     Indication: Product used for unknown indication
     Route: 030
     Dates: start: 20240827
  2. INVEGA SUSTENNA [Suspect]
     Active Substance: PALIPERIDONE PALMITATE
     Route: 030
     Dates: start: 20240903
  3. INVEGA SUSTENNA [Suspect]
     Active Substance: PALIPERIDONE PALMITATE
  4. INVEGA TRINZA [Suspect]
     Active Substance: PALIPERIDONE PALMITATE
     Indication: Product used for unknown indication
     Route: 030
  5. INVEGA TRINZA [Suspect]
     Active Substance: PALIPERIDONE PALMITATE
  6. INVEGA TRINZA [Suspect]
     Active Substance: PALIPERIDONE PALMITATE

REACTIONS (22)
  - Hospitalisation [Unknown]
  - Diabetes mellitus [Recovered/Resolved]
  - Cough [Unknown]
  - Nasopharyngitis [Unknown]
  - Dry skin [Unknown]
  - Dry mouth [Recovered/Resolved]
  - Headache [Unknown]
  - Blood glucose increased [Unknown]
  - Dizziness [Unknown]
  - Hypotension [Unknown]
  - Oropharyngeal pain [Unknown]
  - Hypoaesthesia [Unknown]
  - Gait inability [Unknown]
  - Weight increased [Unknown]
  - Menstrual disorder [Unknown]
  - Secretion discharge [Unknown]
  - Influenza like illness [Unknown]
  - Pregnancy [Unknown]
  - Dysstasia [Unknown]
  - Abdominal discomfort [Not Recovered/Not Resolved]
  - Drug intolerance [Unknown]
  - Adverse drug reaction [Recovered/Resolved]

NARRATIVE: CASE EVENT DATE: 20240901
